FAERS Safety Report 10234722 (Version 1)
Quarter: 2014Q2

REPORT INFORMATION
  Report Type: Spontaneous
  Country: SA (occurrence: SA)
  Receive Date: 20140613
  Receipt Date: 20140613
  Transmission Date: 20141212
  Serious: Yes (Life-Threatening, Hospitalization, Other)
  Sender: FDA-Public Use
  Company Number: SA-ASTRAZENECA-2014SE40812

PATIENT
  Sex: Male

DRUGS (1)
  1. BRILINTA [Suspect]
     Dosage: LOADING DOSE 180 MG DAILY
     Route: 048

REACTIONS (2)
  - Lung infection [Unknown]
  - Haemorrhage [Recovered/Resolved]
